FAERS Safety Report 6209232-3 (Version None)
Quarter: 2009Q2

REPORT INFORMATION
  Report Type: 
  Country: None (occurrence: None)
  Receive Date: 20090529
  Receipt Date: 20090525
  Transmission Date: 20091009
  Serious: Yes (Life-Threatening, Other)
  Sender: FDA-Public Use
  Company Number: PHHO2009TZ06472

PATIENT
  Sex: Female
  Weight: 64.9 kg

DRUGS (2)
  1. CGP 56697 T31707+ [Suspect]
     Indication: MALARIA
     Dosage: UNK
     Route: 048
     Dates: start: 20090514, end: 20090515
  2. QUININE [Concomitant]

REACTIONS (8)
  - CHEST DISCOMFORT [None]
  - DYSPNOEA [None]
  - FATIGUE [None]
  - HEADACHE [None]
  - LACRIMATION INCREASED [None]
  - LETHARGY [None]
  - PYREXIA [None]
  - RESPIRATORY RATE INCREASED [None]
